FAERS Safety Report 10230837 (Version 1)
Quarter: 2014Q2

REPORT INFORMATION
  Report Type: Spontaneous
  Country: US (occurrence: US)
  Receive Date: 20140611
  Receipt Date: 20140611
  Transmission Date: 20141212
  Serious: No
  Sender: FDA-Public Use
  Company Number: US-BAYER-2014-085420

PATIENT
  Age: 43 Year
  Sex: Female

DRUGS (3)
  1. ULTRAVIST [Suspect]
     Indication: COMPUTERISED TOMOGRAM
     Dosage: 122 ML, ONCE
  2. BENADRYL [Concomitant]
     Indication: EYE PRURITUS
     Dosage: UNK
     Route: 042
  3. BENADRYL [Concomitant]
     Indication: URTICARIA

REACTIONS (2)
  - Urticaria [Recovered/Resolved]
  - Eye pruritus [Recovered/Resolved]
